FAERS Safety Report 5092230-3 (Version None)
Quarter: 2006Q3

REPORT INFORMATION
  Report Type: 
  Country: None (occurrence: None)
  Receive Date: 20060824
  Receipt Date: 20060815
  Transmission Date: 20061208
  Serious: Yes (Hospitalization, Other)
  Sender: FDA-Public Use
  Company Number: 2005BI007223

PATIENT
  Sex: Female

DRUGS (7)
  1. AVONEX [Suspect]
     Indication: MULTIPLE SCLEROSIS
     Dosage: 30 UG; QW; IM
     Route: 030
     Dates: start: 20020403, end: 20030714
  2. AVONEX [Suspect]
     Dosage: 30 UG, QW, IM, SEE IMAGE
     Route: 030
  3. AVONEX [Suspect]
  4. COUMADIN [Concomitant]
  5. NEXIUM [Concomitant]
  6. MIRALAX [Concomitant]
  7. ZOMETA [Concomitant]

REACTIONS (1)
  - NO ADVERSE EFFECT [None]
